FAERS Safety Report 24756170 (Version 1)
Quarter: 2024Q4

REPORT INFORMATION
  Report Type: Spontaneous
  Country: US (occurrence: US)
  Receive Date: 20241219
  Receipt Date: 20241219
  Transmission Date: 20250115
  Serious: No
  Sender: STRIDES
  Company Number: US-STRIDES ARCOLAB LIMITED-2024SP014905

PATIENT
  Age: 53 Year
  Sex: Female

DRUGS (2)
  1. GABAPENTIN [Suspect]
     Active Substance: GABAPENTIN
     Indication: Lichen planopilaris
     Dosage: 100 MILLIGRAM, QD (AT BEDTIME)
     Route: 048
  2. MINOXIDIL [Concomitant]
     Active Substance: MINOXIDIL
     Indication: Lichen planopilaris
     Dosage: UNK
     Route: 048

REACTIONS (2)
  - Somnolence [Unknown]
  - Off label use [Unknown]
